FAERS Safety Report 4319126-6 (Version None)
Quarter: 2004Q1

REPORT INFORMATION
  Report Type: 
  Country: None (occurrence: None)
  Receive Date: 20040318
  Receipt Date: 20010810
  Transmission Date: 20041129
  Serious: Yes (Hospitalization)
  Sender: FDA-Public Use
  Company Number: 64886-2001-031

PATIENT
  Age: 12 Year
  Sex: Male

DRUGS (5)
  1. METHOTREXATE [Suspect]
     Indication: ACUTE LYMPHOCYTIC LEUKAEMIA
     Dosage: 12 MG IT
     Route: 037
  2. VINCRISTINE [Concomitant]
  3. CYCLOPHOSPHAMIDE [Concomitant]
  4. CYTOSINE ARABINOSIDE [Concomitant]
  5. MERCAPTOPURINE [Concomitant]

REACTIONS (2)
  - DYSPHASIA [None]
  - HEMIPARESIS [None]
